FAERS Safety Report 20409212 (Version 1)
Quarter: 2022Q1

REPORT INFORMATION
  Report Type: Report from Study
  Country: US (occurrence: US)
  Receive Date: 20220201
  Receipt Date: 20220201
  Transmission Date: 20220423
  Serious: Yes (Hospitalization)
  Sender: FDA-Public Use
  Company Number: US-GILEAD-2022-0567173

PATIENT
  Age: 13 Year
  Sex: Male

DRUGS (9)
  1. AZTREONAM LYSINE [Suspect]
     Active Substance: AZTREONAM LYSINE
     Indication: Cystic fibrosis
     Dosage: INHALE 1 ML (1 VIAL) VIA ALTERA NEBULIZER THREE TIMES A DAY FOR 28 DAYS ALTERNATING WITH TOBI
     Route: 055
  2. FLOVENT [Concomitant]
     Active Substance: FLUTICASONE PROPIONATE
  3. PULMICORT TURBUHALER [Concomitant]
     Active Substance: BUDESONIDE
  4. SODIUM CHLORIDE [Concomitant]
     Active Substance: SODIUM CHLORIDE
  5. PULMOZYME [Concomitant]
     Active Substance: DORNASE ALFA
  6. VITAMINS NOS [Concomitant]
     Active Substance: VITAMINS
  7. ALBUTEROL [Concomitant]
     Active Substance: ALBUTEROL
  8. URSODIOL [Concomitant]
     Active Substance: URSODIOL
  9. ZENPEP [Concomitant]
     Active Substance: PANCRELIPASE AMYLASE\PANCRELIPASE LIPASE\PANCRELIPASE PROTEASE

REACTIONS (2)
  - Sinusitis [Unknown]
  - Polyp [Unknown]

NARRATIVE: CASE EVENT DATE: 20220103
